FAERS Safety Report 4497996-9 (Version None)
Quarter: 2004Q4

REPORT INFORMATION
  Report Type: 
  Country: None (occurrence: None)
  Receive Date: 20041109
  Receipt Date: 20041109
  Transmission Date: 20050328
  Serious: Yes (Life-Threatening)
  Sender: FDA-Public Use
  Company Number: None

PATIENT
  Age: 59 Year
  Sex: Male
  Weight: 64.5 kg

DRUGS (4)
  1. LISINOPRIL AND HYDROCHLOROTHIAZIDE [Suspect]
     Indication: HYPERTENSION
     Dosage: 12.5/10 MG ONCE DAILY ORAL
     Route: 048
     Dates: start: 20040731, end: 20040811
  2. CITALOPRAM HYDROBROMIDE [Concomitant]
  3. TRAMADOL HCL [Concomitant]
  4. TRAZODONE HCL [Concomitant]

REACTIONS (3)
  - HYPOAESTHESIA [None]
  - OEDEMA MOUTH [None]
  - SWELLING FACE [None]
